FAERS Safety Report 10692211 (Version 2)
Quarter: 2015Q1

REPORT INFORMATION
  Report Type: Spontaneous
  Country: TR (occurrence: TR)
  Receive Date: 20150106
  Receipt Date: 20150106
  Transmission Date: 20150720
  Serious: Yes (Hospitalization)
  Sender: FDA-Public Use
  Company Number: TR-ACCORD-027942

PATIENT
  Age: 24 Year
  Sex: Female

DRUGS (1)
  1. AMITRIPTYLINE [Suspect]
     Active Substance: AMITRIPTYLINE
     Indication: PRODUCT USED FOR UNKNOWN INDICATION

REACTIONS (7)
  - Disorientation [Unknown]
  - Sinus tachycardia [Recovering/Resolving]
  - Dysarthria [Unknown]
  - Confusional state [Unknown]
  - Toxicity to various agents [Recovering/Resolving]
  - Mydriasis [Unknown]
  - Blood pressure decreased [Recovering/Resolving]
